FAERS Safety Report 4745831-3 (Version None)
Quarter: 2005Q3

REPORT INFORMATION
  Report Type: 
  Country: None (occurrence: None)
  Receive Date: 20050815
  Receipt Date: 20050815
  Transmission Date: 20060218
  Serious: Yes (Life-Threatening, Hospitalization)
  Sender: FDA-Public Use
  Company Number: None

PATIENT
  Sex: Female
  Weight: 56.6996 kg

DRUGS (2)
  1. SULFAZALZINE    500 MG      MUTUAL PHARMACEUTICAL CO., INC. [Suspect]
     Indication: COLITIS ULCERATIVE
     Dosage: 2 TABLETS   DAY  ORAL
     Route: 048
     Dates: start: 20050801, end: 20050807
  2. CORTISONE ACETATE TAB [Concomitant]

REACTIONS (6)
  - HEADACHE [None]
  - LOSS OF CONSCIOUSNESS [None]
  - PYREXIA [None]
  - RASH ERYTHEMATOUS [None]
  - RASH GENERALISED [None]
  - RASH MACULAR [None]
